FAERS Safety Report 10240587 (Version 1)
Quarter: 2014Q2

REPORT INFORMATION
  Report Type: Spontaneous
  Country: US (occurrence: None)
  Receive Date: 20140613
  Receipt Date: 20140613
  Transmission Date: 20141212
  Serious: Yes (Disabling)
  Sender: FDA-Public Use
  Company Number: None

PATIENT
  Age: 64 Year
  Sex: Female
  Weight: 72.58 kg

DRUGS (8)
  1. SPIRONOLACT 50MG RX#7015621 - WALMART [Suspect]
     Indication: CARDIAC DISORDER
     Dosage: 50 MG, 1 A DAY, 1 IN MORNING, BY MOUTH ORAL
     Route: 048
     Dates: start: 20131001, end: 20140222
  2. CLOPIDOGREL [Concomitant]
  3. LISINOPRIL [Concomitant]
  4. SIMVASTATIN [Concomitant]
  5. LASIX [Concomitant]
  6. CARVEDILOL [Concomitant]
  7. METFORMIN [Concomitant]
  8. JANUVIA [Concomitant]

REACTIONS (5)
  - Breast enlargement [None]
  - Breast pain [None]
  - Pruritus [None]
  - Galactorrhoea [None]
  - Breast induration [None]
